FAERS Safety Report 13022956 (Version 1)
Quarter: 2016Q4

REPORT INFORMATION
  Report Type: Spontaneous
  Country: US (occurrence: US)
  Receive Date: 20161213
  Receipt Date: 20161213
  Transmission Date: 20170207
  Serious: Yes (Hospitalization, Other)
  Sender: FDA-Public Use
  Company Number: US-GLAXOSMITHKLINE-US2016183135

PATIENT
  Age: 53 Year
  Sex: Female

DRUGS (7)
  1. ELAVIL [Concomitant]
     Active Substance: AMITRIPTYLINE HYDROCHLORIDE
  2. DULOXETINE. [Concomitant]
     Active Substance: DULOXETINE
  3. TRAMADOL. [Concomitant]
     Active Substance: TRAMADOL
  4. BENLYSTA [Suspect]
     Active Substance: BELIMUMAB
     Indication: SYSTEMIC LUPUS ERYTHEMATOSUS
     Dosage: UNK UNK, CYC
     Route: 042
     Dates: start: 201403, end: 201601
  5. OESTRADIOL [Concomitant]
     Active Substance: ESTROGENS
  6. GABAPENTIN. [Concomitant]
     Active Substance: GABAPENTIN
  7. PLAQUENIL [Concomitant]
     Active Substance: HYDROXYCHLOROQUINE SULFATE

REACTIONS (6)
  - Neuralgia [Unknown]
  - Stress [Unknown]
  - Spinal fusion surgery [Recovered/Resolved with Sequelae]
  - Systemic lupus erythematosus [Recovering/Resolving]
  - Migraine [Recovered/Resolved]
  - Skin ulcer [Recovering/Resolving]

NARRATIVE: CASE EVENT DATE: 201403
